FAERS Safety Report 26102622 (Version 1)
Quarter: 2025Q4

REPORT INFORMATION
  Report Type: Report from Study
  Country: IN (occurrence: IN)
  Receive Date: 20251128
  Receipt Date: 20251128
  Transmission Date: 20260118
  Serious: Yes (Death, Hospitalization)
  Sender: ALEXION PHARMACEUTICALS
  Company Number: IN-AstraZeneca-CH-01003206A

PATIENT
  Sex: Female

DRUGS (1)
  1. DURVALUMAB [Suspect]
     Active Substance: DURVALUMAB
     Indication: Biliary cancer metastatic
     Dosage: 1500 MILLIGRAM, Q3W

REACTIONS (3)
  - Dyspnoea [Fatal]
  - Malignant neoplasm progression [Unknown]
  - Illness [Unknown]
